FAERS Safety Report 4415457-X (Version None)
Quarter: 2004Q2

REPORT INFORMATION
  Report Type: 
  Country: None (occurrence: None)
  Receive Date: 20040621
  Receipt Date: 20031215
  Transmission Date: 20050107
  Serious: Yes (Death)
  Sender: FDA-Public Use
  Company Number: USA-2003-0012093

PATIENT
  Age: 41 Year
  Sex: Male
  Weight: 96.6 kg

DRUGS (13)
  1. OXYCODONE HYDROCHLORIDE (SIMILAR NDA 20-553) (OXYCODONE HYDROCHLORIDE) [Suspect]
  2. MORPHINE SULFATE [Suspect]
  3. HYDROCODONE BITARTRATE (SIMILAR TO IND 59175)(HYDROCODONE BITARTRATE) [Suspect]
  4. OXAZEPAM [Suspect]
  5. COCAINE (COCAINE) [Suspect]
  6. ACETAMINOPHEN [Suspect]
  7. PROPOXYPHENE HCL [Suspect]
  8. SERTRALINE HYDROCHLORIDE [Suspect]
  9. OLANZAPINE [Suspect]
  10. TRAZODONE HCL [Suspect]
  11. LIDOCAINE [Suspect]
  12. NICOTINE [Suspect]
  13. CAFFEINE (CAFFEINE) [Suspect]

REACTIONS (1)
  - MULTIPLE DRUG OVERDOSE [None]
